FAERS Safety Report 17613146 (Version 3)
Quarter: 2020Q3

REPORT INFORMATION
  Report Type: Report from Study
  Country: US (occurrence: US)
  Receive Date: 20200401
  Receipt Date: 20200916
  Transmission Date: 20201102
  Serious: Yes (Other)
  Sender: FDA-Public Use
  Company Number: NVSC2020US086377

PATIENT
  Sex: Female

DRUGS (1)
  1. GILENYA [Suspect]
     Active Substance: FINGOLIMOD HYDROCHLORIDE
     Indication: MULTIPLE SCLEROSIS
     Dosage: 0.5 MG, QD
     Route: 048

REACTIONS (14)
  - Vertigo [Unknown]
  - Chest pain [Unknown]
  - Pyrexia [Unknown]
  - Cough [Unknown]
  - Blindness [Unknown]
  - Fall [Unknown]
  - Cardiac murmur [Unknown]
  - Hypersensitivity [Unknown]
  - Dyspnoea [Unknown]
  - Migraine [Unknown]
  - Influenza [Unknown]
  - Cognitive disorder [Unknown]
  - Head injury [Unknown]
  - Chest discomfort [Unknown]
